FAERS Safety Report 24295395 (Version 1)
Quarter: 2024Q3

REPORT INFORMATION
  Report Type: Spontaneous
  Country: US (occurrence: US)
  Receive Date: 20240908
  Receipt Date: 20240908
  Transmission Date: 20241016
  Serious: Yes (Other)
  Sender: DR REDDYS
  Company Number: US-DRL-USA-SPO/USA/24/0012729

PATIENT
  Age: 42 Year
  Sex: Female

DRUGS (8)
  1. LEVETIRACETAM [Suspect]
     Active Substance: LEVETIRACETAM
     Indication: Immune effector cell-associated neurotoxicity syndrome
  2. CYCLOPHOSPHAMIDE [Suspect]
     Active Substance: CYCLOPHOSPHAMIDE
     Indication: Immune effector cell-associated neurotoxicity syndrome
  3. AXICABTAGENE CILOLEUCEL [Concomitant]
     Active Substance: AXICABTAGENE CILOLEUCEL
     Indication: B-cell lymphoma refractory
  4. DEXAMETHASONE [Concomitant]
     Active Substance: DEXAMETHASONE
     Indication: Immune effector cell-associated neurotoxicity syndrome
  5. SODIUM CHLORIDE [Concomitant]
     Active Substance: SODIUM CHLORIDE
     Indication: Immune effector cell-associated neurotoxicity syndrome
  6. MANNITOL [Concomitant]
     Active Substance: MANNITOL
     Indication: Immune effector cell-associated neurotoxicity syndrome
  7. METHYLPREDNISOLONE [Concomitant]
     Active Substance: METHYLPREDNISOLONE
     Indication: Immune effector cell-associated neurotoxicity syndrome
     Route: 042
  8. SILTUXIMAB [Concomitant]
     Active Substance: SILTUXIMAB
     Indication: Immune effector cell-associated neurotoxicity syndrome

REACTIONS (1)
  - Drug ineffective for unapproved indication [Unknown]
